FAERS Safety Report 9290406 (Version 1)
Quarter: 2013Q2

REPORT INFORMATION
  Report Type: Spontaneous
  Country: US (occurrence: None)
  Receive Date: 20130514
  Receipt Date: 20130514
  Transmission Date: 20140414
  Serious: Yes (Other)
  Sender: FDA-Public Use
  Company Number: None

PATIENT
  Sex: Male
  Weight: 106.8 kg

DRUGS (1)
  1. METHYLPREDNISOLONE [Suspect]
     Indication: ACUTE SINUSITIS
     Route: 030
     Dates: start: 20130103

REACTIONS (2)
  - Abscess sterile [None]
  - Subcutaneous abscess [None]
